FAERS Safety Report 4283829-2 (Version None)
Quarter: 2004Q1

REPORT INFORMATION
  Report Type: 
  Country: None (occurrence: None)
  Receive Date: 20040130
  Receipt Date: 20040120
  Transmission Date: 20041129
  Serious: Yes (Death)
  Sender: FDA-Public Use
  Company Number: E128210

PATIENT
  Age: 73 Year
  Sex: Male

DRUGS (5)
  1. CLOPIDOGREL BISULFATE [Suspect]
     Indication: ISCHAEMIC STROKE
     Dosage: 75 MG CLOPIDOGREL ORAL
     Route: 048
     Dates: start: 20010601, end: 20010809
  2. ASPIRIN [Suspect]
     Indication: TRANSIENT ISCHAEMIC ATTACK
     Dosage: 75 MG ASPIRIN DAILY ORAL
     Route: 048
  3. AMLODIPINE [Concomitant]
  4. NITROGLYCERIN [Concomitant]
  5. ENALAPRIL [Concomitant]

REACTIONS (2)
  - CARDIOVASCULAR DISORDER [None]
  - SUDDEN DEATH [None]
